FAERS Safety Report 17865526 (Version 1)
Quarter: 2020Q2

REPORT INFORMATION
  Report Type: Report from Study
  Country: ES (occurrence: ES)
  Receive Date: 20200605
  Receipt Date: 20200605
  Transmission Date: 20200714
  Serious: Yes (Hospitalization)
  Sender: FDA-Public Use
  Company Number: ES-TEVA-2020-ES-1244487

PATIENT
  Age: 93 Year
  Sex: Female

DRUGS (5)
  1. PARACETAMOL (12A) [Concomitant]
     Active Substance: ACETAMINOPHEN
     Dosage: 3 GRAM
     Route: 048
  2. LOSARTAN (7157A) [Concomitant]
     Active Substance: LOSARTAN
     Indication: HYPERTENSION
     Dosage: 50 MG
     Route: 048
     Dates: end: 20170330
  3. IBUPROFENO (1769A) [Suspect]
     Active Substance: IBUPROFEN
     Indication: PAIN
     Dosage: 1.2 GRAM
     Route: 048
     Dates: start: 20170325, end: 20170330
  4. OMEPRAZOL (2141A) [Concomitant]
     Active Substance: OMEPRAZOLE
     Indication: PROPHYLAXIS
     Dosage: 20 MG
     Route: 048
     Dates: start: 20170325
  5. HIDROFEROL 0,266 MG SOLUCION ORAL , 10 AMPOLLAS BEBIBLES DE 1,5 ML [Concomitant]
     Active Substance: CALCIFEDIOL
     Dosage: 1 DOSAGE FORMS
     Route: 048
     Dates: end: 20170330

REACTIONS (1)
  - Lower gastrointestinal haemorrhage [Recovered/Resolved]

NARRATIVE: CASE EVENT DATE: 20170330
